FAERS Safety Report 10928012 (Version 1)
Quarter: 2015Q1

REPORT INFORMATION
  Report Type: Spontaneous
  Country: None (occurrence: None)
  Receive Date: 20150317
  Receipt Date: 20150317
  Transmission Date: 20150721
  Serious: No
  Sender: FDA-Public Use
  Company Number: None

PATIENT
  Age: 20 Year
  Sex: Female

DRUGS (2)
  1. TRI-SPRINTEC [Concomitant]
     Active Substance: ETHINYL ESTRADIOL\NORGESTIMATE
  2. CEFDINIR 300MG [Suspect]
     Active Substance: CEFDINIR

REACTIONS (1)
  - Vaginal infection [None]

NARRATIVE: CASE EVENT DATE: 20140131
